FAERS Safety Report 9595795 (Version 1)
Quarter: 2013Q4

REPORT INFORMATION
  Report Type: Spontaneous
  Country: IT (occurrence: IT)
  Receive Date: 20131004
  Receipt Date: 20131004
  Transmission Date: 20140711
  Serious: Yes (Hospitalization)
  Sender: FDA-Public Use
  Company Number: IT-ASTRAZENECA-2013SE71878

PATIENT
  Age: 82 Year
  Sex: Male

DRUGS (2)
  1. BICALUTAMIDE [Suspect]
     Indication: PROSTATE CANCER
     Route: 048
  2. LEUPRORELIN [Suspect]
     Indication: PROSTATE CANCER
     Route: 058

REACTIONS (4)
  - Pleural effusion [Recovering/Resolving]
  - Acute respiratory failure [Recovering/Resolving]
  - Respiratory acidosis [Recovering/Resolving]
  - Insomnia [Recovering/Resolving]
